FAERS Safety Report 10542419 (Version 2)
Quarter: 2014Q4

REPORT INFORMATION
  Report Type: Spontaneous
  Country: JP (occurrence: JP)
  Receive Date: 20141026
  Receipt Date: 20141107
  Transmission Date: 20150529
  Serious: Yes (Other)
  Sender: FDA-Public Use
  Company Number: PHHY2014JP137917

PATIENT

DRUGS (1)
  1. AFINITOR [Suspect]
     Active Substance: EVEROLIMUS
     Indication: NEUROENDOCRINE TUMOUR
     Route: 048

REACTIONS (4)
  - Jaundice cholestatic [Unknown]
  - Cholangitis [Unknown]
  - Diabetes mellitus [Unknown]
  - Glucose tolerance impaired [Unknown]
